FAERS Safety Report 4538877-1 (Version None)
Quarter: 2004Q4

REPORT INFORMATION
  Report Type: 
  Country: None (occurrence: None)
  Receive Date: 20041222
  Receipt Date: 20041201
  Transmission Date: 20050328
  Serious: Yes (Hospitalization, Other)
  Sender: FDA-Public Use
  Company Number: US_0412108850

PATIENT
  Age: 81 Year
  Sex: Female

DRUGS (2)
  1. EVISTA [Suspect]
  2. COUMADIN [Concomitant]

REACTIONS (6)
  - ACTIVITIES OF DAILY LIVING IMPAIRED [None]
  - CARCINOMA [None]
  - CARDIAC DISORDER [None]
  - HOT FLUSH [None]
  - OEDEMA PERIPHERAL [None]
  - ULCER [None]
